FAERS Safety Report 4437193-6 (Version None)
Quarter: 2004Q3

REPORT INFORMATION
  Report Type: 
  Country: None (occurrence: None)
  Receive Date: 20040726
  Receipt Date: 20040303
  Transmission Date: 20050211
  Serious: No
  Sender: FDA-Public Use
  Company Number: USA040360886

PATIENT
  Age: 79 Year
  Sex: Female

DRUGS (9)
  1. FORTEO [Suspect]
     Indication: OSTEOPOROSIS
     Dates: start: 20031001
  2. COUMADIN [Concomitant]
  3. ENALAPRIL [Concomitant]
  4. LEVOTHROID [Concomitant]
  5. FUROSEMIDE [Concomitant]
  6. ACIPHEX [Concomitant]
  7. ZETIA [Concomitant]
  8. CALCIUM [Concomitant]
  9. VITAMIN D [Concomitant]

REACTIONS (1)
  - INJECTION SITE HAEMORRHAGE [None]
